FAERS Safety Report 13660871 (Version 1)
Quarter: 2017Q2

REPORT INFORMATION
  Report Type: Spontaneous
  Country: US (occurrence: US)
  Receive Date: 20170616
  Receipt Date: 20170616
  Transmission Date: 20170830
  Serious: Yes (Other)
  Sender: FDA-Public Use
  Company Number: US-JNJFOC-20170613422

PATIENT
  Sex: Female

DRUGS (2)
  1. ACETAMINOPHEN. [Suspect]
     Active Substance: ACETAMINOPHEN
     Route: 048
  2. ACETAMINOPHEN. [Suspect]
     Active Substance: ACETAMINOPHEN
     Indication: DRUG PROVOCATION TEST
     Route: 048

REACTIONS (7)
  - Oral pruritus [Unknown]
  - Off label use [Unknown]
  - Oropharyngeal discomfort [Unknown]
  - Wrong technique in product usage process [Unknown]
  - Throat tightness [Unknown]
  - Product use in unapproved indication [Unknown]
  - Dysphonia [Unknown]
